FAERS Safety Report 9277585 (Version 2)
Quarter: 2013Q2

REPORT INFORMATION
  Report Type: Report from Study
  Country: CA (occurrence: CA)
  Receive Date: 20130508
  Receipt Date: 20130513
  Transmission Date: 20140414
  Serious: Yes (Other)
  Sender: FDA-Public Use
  Company Number: CA-JNJFOC-20130417137

PATIENT
  Age: 33 Year
  Sex: Female
  Weight: 47 kg

DRUGS (2)
  1. REMICADE [Suspect]
     Indication: CROHN^S DISEASE
     Route: 042
     Dates: start: 20130123
  2. IMURAN [Concomitant]
     Route: 065

REACTIONS (3)
  - Breast cyst [Not Recovered/Not Resolved]
  - Breast abscess [Not Recovered/Not Resolved]
  - Pyrexia [Not Recovered/Not Resolved]
